FAERS Safety Report 8882968 (Version 2)
Quarter: 2012Q4

REPORT INFORMATION
  Report Type: Report from Study
  Country: US (occurrence: US)
  Receive Date: 20121103
  Receipt Date: 20121121
  Transmission Date: 20130627
  Serious: Yes (Other)
  Sender: FDA-Public Use
  Company Number: US-US-EMD SERONO, INC.-7170949

PATIENT
  Sex: Female
  Weight: 91 kg

DRUGS (7)
  1. REBIF [Suspect]
     Indication: MULTIPLE SCLEROSIS
     Route: 058
     Dates: start: 20080202
  2. LOSARTAN [Concomitant]
     Indication: HYPERTENSION
  3. PRAVASTATIN [Concomitant]
     Indication: BLOOD CHOLESTEROL INCREASED
  4. LEVOTHYROXINE [Concomitant]
     Indication: HYPOTHYROIDISM
  5. FAMOTIDINE [Concomitant]
     Indication: GASTROOESOPHAGEAL REFLUX DISEASE
  6. LYRICA [Concomitant]
     Indication: RESTLESS LEGS SYNDROME
  7. NONSTEROIDAL ANTI-INFLAMMATORY DRUG [Concomitant]
     Indication: PREMEDICATION

REACTIONS (4)
  - Renal failure chronic [Not Recovered/Not Resolved]
  - Diabetes mellitus [Not Recovered/Not Resolved]
  - Injection site bruising [Unknown]
  - Injection site pain [Unknown]
